FAERS Safety Report 4694565-2 (Version None)
Quarter: 2005Q2

REPORT INFORMATION
  Report Type: 
  Country: None (occurrence: None)
  Receive Date: 20050620
  Receipt Date: 20050314
  Transmission Date: 20051028
  Serious: Yes (Hospitalization, Other)
  Sender: FDA-Public Use
  Company Number: US-MERCK-0503USA02971

PATIENT
  Age: 47 Year
  Sex: Female
  Weight: 77 kg

DRUGS (27)
  1. VIOXX [Suspect]
     Indication: BACK PAIN
     Route: 048
     Dates: start: 20010101, end: 20040101
  2. VIOXX [Suspect]
     Indication: ARTHRALGIA
     Route: 048
     Dates: start: 20010101, end: 20040101
  3. RITALIN [Concomitant]
     Route: 065
     Dates: start: 19900101
  4. SINGULAIR [Concomitant]
     Route: 048
  5. PRAVACHOL [Concomitant]
     Indication: BLOOD CHOLESTEROL DECREASED
     Route: 065
     Dates: start: 20020101
  6. FLEXERIL [Concomitant]
     Route: 065
     Dates: start: 20020101
  7. DARVOCET-N 100 [Concomitant]
     Route: 065
     Dates: start: 20020101
  8. ADVAIR [Concomitant]
     Route: 065
  9. WELLBUTRIN [Concomitant]
     Route: 065
     Dates: start: 20020101, end: 20041201
  10. PROZAC [Concomitant]
     Route: 065
     Dates: start: 19930101, end: 20041001
  11. NITRO-DUR [Concomitant]
     Indication: CHEST PAIN
     Route: 065
     Dates: start: 20020101
  12. FLONASE [Concomitant]
     Route: 065
  13. TOPROL-XL [Concomitant]
     Route: 065
     Dates: start: 20010101
  14. KLONOPIN [Concomitant]
     Route: 065
     Dates: start: 20030101
  15. ALBUTEROL SULFATE [Concomitant]
     Route: 065
  16. VICODIN [Concomitant]
     Route: 065
     Dates: start: 20030101
  17. NITROGLYCERIN [Concomitant]
     Route: 065
     Dates: start: 20030501
  18. NORVASC [Concomitant]
     Route: 065
     Dates: start: 20020101
  19. PROTONIX [Concomitant]
     Route: 065
  20. HYDROCHLOROTHIAZIDE TABLETS (USP 23) [Concomitant]
     Indication: CARDIAC DISORDER
     Route: 065
     Dates: start: 20020101
  21. CARBATROL [Concomitant]
     Route: 065
  22. PROVIGIL [Concomitant]
     Route: 065
  23. CELEBREX [Concomitant]
     Indication: PAIN
     Route: 065
     Dates: start: 20020101, end: 20030101
  24. ASPIRIN [Concomitant]
     Indication: ISCHAEMIC HEART DISEASE PROPHYLAXIS
     Route: 065
     Dates: start: 20020101
  25. IBUPROFEN [Concomitant]
     Route: 065
     Dates: start: 19950101
  26. ZANAFLEX [Concomitant]
     Route: 065
     Dates: start: 20030101
  27. DIOVAN [Concomitant]
     Indication: HYPERTENSION
     Route: 065
     Dates: start: 20010101

REACTIONS (13)
  - BLOOD CHOLESTEROL INCREASED [None]
  - CARDIAC DISORDER [None]
  - DYSPEPSIA [None]
  - DYSPNOEA [None]
  - FATIGUE [None]
  - GASTROOESOPHAGEAL REFLUX DISEASE [None]
  - HYPERTENSION [None]
  - MOBILITY DECREASED [None]
  - MYOCARDIAL INFARCTION [None]
  - OEDEMA PERIPHERAL [None]
  - PANIC DISORDER [None]
  - PARALYSIS [None]
  - SLEEP APNOEA SYNDROME [None]
